FAERS Safety Report 6709623-8 (Version None)
Quarter: 2010Q2

REPORT INFORMATION
  Report Type: 
  Country: None (occurrence: None)
  Receive Date: 20100504
  Receipt Date: 20100428
  Transmission Date: 20101027
  Serious: Yes (Disabling)
  Sender: FDA-Public Use
  Company Number: GB-ROCHE-697814

PATIENT
  Age: 55 Year
  Sex: Female

DRUGS (3)
  1. NAPROXEN [Suspect]
     Indication: DRUG USE FOR UNKNOWN INDICATION
     Route: 065
  2. STALEVO 100 [Suspect]
     Indication: PARKINSON'S DISEASE
     Route: 048
     Dates: start: 20090626
  3. STALEVO 100 [Suspect]
     Dosage: DOSE REPORTED AS 50 MG TDS.
     Route: 048
     Dates: end: 20090918

REACTIONS (3)
  - ORTHOSTATIC HYPOTENSION [None]
  - SYNCOPE [None]
  - WEIGHT DECREASED [None]
